FAERS Safety Report 6387773-6 (Version None)
Quarter: 2009Q4

REPORT INFORMATION
  Report Type: 
  Country: None (occurrence: None)
  Receive Date: 20091005
  Receipt Date: 20090923
  Transmission Date: 20100525
  Serious: Yes (Other)
  Sender: FDA-Public Use
  Company Number: US-MYLANLABS-2009S1016737

PATIENT
  Age: 38 Year
  Sex: Female
  Weight: 72.58 kg

DRUGS (12)
  1. LEVETIRACETAM [Suspect]
     Indication: CONVULSION
     Route: 048
     Dates: start: 20090623, end: 20090920
  2. LEVETIRACETAM [Suspect]
     Route: 048
     Dates: start: 20090623, end: 20090920
  3. CLONAZEPAM [Concomitant]
     Route: 048
  4. ABILIFY [Concomitant]
     Route: 048
  5. ENBREL [Concomitant]
     Indication: SWEAT GLAND INFECTION
     Route: 058
  6. SINGULAIR [Concomitant]
  7. TOPAMAX [Concomitant]
     Indication: CONVULSION
     Route: 048
  8. EFFEXOR XR [Concomitant]
     Route: 048
  9. EFFEXOR XR [Concomitant]
     Route: 048
  10. SYNTHROID [Concomitant]
     Route: 048
  11. CIMETIDINE [Concomitant]
     Route: 048
  12. LITHIUM CARBONATE [Concomitant]
     Route: 048

REACTIONS (8)
  - ALOPECIA [None]
  - ANGER [None]
  - CONVULSION [None]
  - DRUG EFFECT DECREASED [None]
  - DYSPNOEA [None]
  - EMOTIONAL DISORDER [None]
  - HALLUCINATION [None]
  - PANIC ATTACK [None]
